FAERS Safety Report 9485183 (Version 2)
Quarter: 2013Q3

REPORT INFORMATION
  Report Type: Spontaneous
  Country: US (occurrence: US)
  Receive Date: 20130828
  Receipt Date: 20130903
  Transmission Date: 20140515
  Serious: No
  Sender: FDA-Public Use
  Company Number: US-009507513-1305USA016347

PATIENT
  Age: 61 Year
  Sex: Male
  Weight: 68.93 kg

DRUGS (4)
  1. MIRALAX [Suspect]
     Indication: CONSTIPATION
     Dosage: 25.5 G, ONCE
     Route: 048
     Dates: start: 2008
  2. MIRALAX [Suspect]
     Indication: MEDICAL OBSERVATION
  3. ARMOUR THYROID TABLETS [Concomitant]
     Indication: HYPOTHYROIDISM
     Dosage: 60 MG, UNKNOWN
  4. HYDROCODONE [Concomitant]
     Indication: ABDOMINAL PAIN
     Dosage: 5-500 MG, UNKNOWN

REACTIONS (3)
  - Condition aggravated [Recovered/Resolved]
  - Overdose [Unknown]
  - Off label use [Unknown]
